FAERS Safety Report 12603349 (Version 2)
Quarter: 2016Q4

REPORT INFORMATION
  Report Type: Report from Study
  Country: TH (occurrence: TH)
  Receive Date: 20160728
  Receipt Date: 20161106
  Transmission Date: 20170207
  Serious: Yes (Hospitalization, Other)
  Sender: FDA-Public Use
  Company Number: TH-ELI_LILLY_AND_COMPANY-TH201602000637

PATIENT
  Age: 83 Year
  Sex: Female

DRUGS (2)
  1. FORTEO [Suspect]
     Active Substance: TERIPARATIDE
     Dosage: 20 UG, QD
     Route: 058
  2. FORTEO [Suspect]
     Active Substance: TERIPARATIDE
     Indication: OSTEOPOROSIS
     Dosage: 20 UG, QD
     Route: 058
     Dates: start: 20151016

REACTIONS (8)
  - Hip fracture [Recovering/Resolving]
  - Malnutrition [Unknown]
  - Viral infection [Unknown]
  - Fall [Unknown]
  - Pain [Recovering/Resolving]
  - Blister [Unknown]
  - Asthenia [Unknown]
  - Emphysema [Unknown]

NARRATIVE: CASE EVENT DATE: 201601
